FAERS Safety Report 7328882-4 (Version None)
Quarter: 2011Q1

REPORT INFORMATION
  Report Type: 
  Country: None (occurrence: None)
  Receive Date: 20110218
  Receipt Date: 20110211
  Transmission Date: 20110831
  Serious: Yes (Other)
  Sender: FDA-Public Use
  Company Number: 2010SP066440

PATIENT
  Age: 81 Year
  Sex: Female

DRUGS (12)
  1. KALEORID [Concomitant]
  2. AERIUS (DESLORATADINE / 01398501/) [Suspect]
     Indication: PRODUCT USED FOR UNKNOWN INDICATION
  3. EQUANIL [Concomitant]
  4. KARDEGIC [Concomitant]
  5. RAMIPRIL [Concomitant]
  6. BISOPROLOL [Concomitant]
  7. CYMBALTA [Suspect]
     Indication: ANXIETY
     Dosage: 30 MG QD, PO
     Route: 048
     Dates: start: 20090425, end: 20090426
  8. CIPROFLOXACIN [Suspect]
     Indication: URINARY TRACT INFECTION
     Dosage: 500 MG, QD, PO
     Route: 048
     Dates: start: 20090425, end: 20090426
  9. LASIX [Concomitant]
  10. CETORNAN [Concomitant]
  11. PLAVIX [Concomitant]
  12. DISCOTRINE [Concomitant]

REACTIONS (5)
  - CHOLESTASIS [None]
  - ABDOMINAL PAIN [None]
  - PALLOR [None]
  - CYTOLYTIC HEPATITIS [None]
  - HYPOTENSION [None]
